FAERS Safety Report 7467263-X (Version None)
Quarter: 2011Q2

REPORT INFORMATION
  Report Type: 
  Country: None (occurrence: None)
  Receive Date: 20110509
  Receipt Date: 20101123
  Transmission Date: 20111010
  Serious: No
  Sender: FDA-Public Use
  Company Number: US-ALEXION-A201001511

PATIENT
  Sex: Female
  Weight: 74.83 kg

DRUGS (7)
  1. SOLIRIS [Suspect]
     Indication: PAROXYSMAL NOCTURNAL HAEMOGLOBINURIA
     Dosage: UNK
     Route: 042
  2. IRON [Concomitant]
     Dosage: UNK
  3. FOSAMAX [Concomitant]
  4. LIPITOR [Concomitant]
  5. TYLENOL (CAPLET) [Concomitant]
  6. CALCIUM W/COLECALCIFEROL [Concomitant]
  7. COQ10 [Concomitant]

REACTIONS (1)
  - PALPITATIONS [None]
